FAERS Safety Report 14343275 (Version 3)
Quarter: 2019Q2

REPORT INFORMATION
  Report Type: Spontaneous
  Country: US (occurrence: US)
  Receive Date: 20180102
  Receipt Date: 20190401
  Transmission Date: 20190711
  Serious: No
  Sender: FDA-Public Use
  Company Number: US-BIOMARINAP-US-2017-116503

PATIENT
  Age: 39 Year
  Sex: Female
  Weight: 23.13 kg

DRUGS (1)
  1. VIMIZIM [Suspect]
     Active Substance: ELOSULFASE ALFA
     Indication: DWARFISM
     Dosage: 45 MG, QW
     Route: 042
     Dates: start: 20160511

REACTIONS (3)
  - Blood pressure increased [Recovered/Resolved]
  - Back pain [Unknown]
  - Migraine [Recovered/Resolved]

NARRATIVE: CASE EVENT DATE: 20171214
